FAERS Safety Report 9393304 (Version 1)
Quarter: 2013Q3

REPORT INFORMATION
  Report Type: Spontaneous
  Country: NL (occurrence: NL)
  Receive Date: 20130710
  Receipt Date: 20130710
  Transmission Date: 20140515
  Serious: Yes (Other)
  Sender: FDA-Public Use
  Company Number: NL-MYLANLABS-2013S1014600

PATIENT
  Age: 63 Year
  Sex: Male

DRUGS (4)
  1. METHOTREXATE [Suspect]
     Indication: IMMUNOSUPPRESSANT DRUG THERAPY
     Dosage: 2.5MG WEEKLY
     Route: 065
  2. PREDNISOLONE [Suspect]
     Indication: IMMUNOSUPPRESSANT DRUG THERAPY
     Dosage: 80 MG/DAY
     Route: 048
  3. AZATHIOPRINE [Suspect]
     Indication: IMMUNOSUPPRESSANT DRUG THERAPY
     Dosage: STEP-UP DOSAGE REGIMEN UP TO 100MG DAILY
     Route: 065
  4. VALACICLOVIR [Concomitant]
     Indication: HERPES VIRUS INFECTION
     Route: 065

REACTIONS (4)
  - Hepatic function abnormal [Unknown]
  - Pancytopenia [Recovered/Resolved]
  - Diabetes mellitus [Unknown]
  - Deep vein thrombosis [Unknown]
